FAERS Safety Report 21446496 (Version 1)
Quarter: 2022Q4

REPORT INFORMATION
  Report Type: Spontaneous
  Country: US (occurrence: US)
  Receive Date: 20221012
  Receipt Date: 20221012
  Transmission Date: 20230113
  Serious: Yes (Other)
  Sender: FDA-Public Use
  Company Number: US-BAYER-2022A138686

PATIENT
  Age: 62 Year
  Sex: Female

DRUGS (4)
  1. ASPIRIN [Suspect]
     Active Substance: ASPIRIN
  2. FUROSEMIDE [Concomitant]
     Active Substance: FUROSEMIDE
  3. LOSARTAN [Concomitant]
     Active Substance: LOSARTAN
  4. WARFARIN [Concomitant]
     Active Substance: WARFARIN

REACTIONS (1)
  - Cerebellar haematoma [None]
